FAERS Safety Report 6922763-3 (Version None)
Quarter: 2010Q3

REPORT INFORMATION
  Report Type: 
  Country: None (occurrence: None)
  Receive Date: 20100813
  Receipt Date: 20100802
  Transmission Date: 20110219
  Serious: Yes (Hospitalization)
  Sender: FDA-Public Use
  Company Number: HR-WYE-H16623510

PATIENT
  Age: 66 Year
  Sex: Female

DRUGS (3)
  1. SIROLIMUS [Suspect]
     Indication: RENAL TRANSPLANT
     Dosage: UNSPECIFIED
     Dates: start: 20080101
  2. FLUVASTATIN [Suspect]
     Indication: BLOOD CHOLESTEROL INCREASED
  3. MYCOPHENOLATE MOFETIL [Concomitant]
     Indication: RENAL TRANSPLANT

REACTIONS (4)
  - DYSLIPIDAEMIA [None]
  - ESCHERICHIA SEPSIS [None]
  - RENAL IMPAIRMENT [None]
  - RHABDOMYOLYSIS [None]
